FAERS Safety Report 6587618-5 (Version None)
Quarter: 2010Q1

REPORT INFORMATION
  Report Type: 
  Country: None (occurrence: None)
  Receive Date: 20100218
  Receipt Date: 20100216
  Transmission Date: 20100710
  Serious: Yes (Other)
  Sender: FDA-Public Use
  Company Number: US-RB-002812-10

PATIENT
  Age: 19 Year
  Sex: Female

DRUGS (1)
  1. DELSYM ADULT COUGH SYRUP [Suspect]
     Route: 048
     Dates: start: 20100212

REACTIONS (4)
  - DELUSION [None]
  - EPISTAXIS [None]
  - SOMNOLENCE [None]
  - VISION BLURRED [None]
